FAERS Safety Report 7812488-4 (Version None)
Quarter: 2011Q4

REPORT INFORMATION
  Report Type: 
  Country: None (occurrence: None)
  Receive Date: 20111011
  Receipt Date: 20110929
  Transmission Date: 20120403
  Serious: Yes (Other)
  Sender: FDA-Public Use
  Company Number: WAES 1110USA00264

PATIENT
  Age: 85 Year
  Sex: Male

DRUGS (6)
  1. METOPROLOL TARTRATE [Concomitant]
  2. ASPIRIN [Concomitant]
  3. ZOCOR [Suspect]
     Indication: ACUTE CORONARY SYNDROME
     Dosage: 40 MG/ DAILY
     Route: 048
     Dates: start: 20070327
  4. PLACEBO [Suspect]
     Indication: ACUTE CORONARY SYNDROME
     Route: 048
     Dates: start: 20070327
  5. TEMISARTAN [Concomitant]
  6. HYDROCHLOROTHIAZIDE [Concomitant]

REACTIONS (1)
  - PEMPHIGOID [None]
